FAERS Safety Report 8136251-2 (Version None)
Quarter: 2012Q1

REPORT INFORMATION
  Report Type: 
  Country: None (occurrence: None)
  Receive Date: 20120214
  Receipt Date: 20120130
  Transmission Date: 20120608
  Serious: Yes (Hospitalization)
  Sender: FDA-Public Use
  Company Number: US-WATSON-2012-01990

PATIENT
  Age: 54 Year
  Sex: Female

DRUGS (1)
  1. METFORMIN HCL [Suspect]
     Indication: TYPE 2 DIABETES MELLITUS
     Dosage: 1000 MG, BID

REACTIONS (5)
  - RESPIRATORY FAILURE [None]
  - HYPOTHERMIA [None]
  - LACTIC ACIDOSIS [None]
  - SHOCK [None]
  - RENAL FAILURE ACUTE [None]
